FAERS Safety Report 15233301 (Version 1)
Quarter: 2018Q3

REPORT INFORMATION
  Report Type: Spontaneous
  Country: AU (occurrence: AU)
  Receive Date: 20180802
  Receipt Date: 20180802
  Transmission Date: 20181010
  Serious: Yes (Hospitalization)
  Sender: FDA-Public Use
  Company Number: AU-MYLANLABS-2018M1057404

PATIENT
  Age: 37 Year
  Sex: Female

DRUGS (2)
  1. S?ADENOSYL?L?METHIONINE [Suspect]
     Active Substance: ADEMETIONINE
     Indication: NUTRITIONAL SUPPLEMENTATION
     Dosage: SHE STARTED ADEMETIONINE IN CONJUNCTION WITH AN SSRI, EIGHT MONTHS PRIOR TO HOSPITALISATION
     Route: 065
  2. ESCITALOPRAM [Suspect]
     Active Substance: ESCITALOPRAM OXALATE
     Indication: DEPRESSION
     Dosage: 7 MONTHS PRIOR TO THE COMMENCEMENT OF ADEMETIONINE.
     Route: 065

REACTIONS (3)
  - Mania [Recovered/Resolved]
  - Mental disorder [Recovered/Resolved]
  - Persecutory delusion [Recovered/Resolved]
